FAERS Safety Report 9937082 (Version 1)
Quarter: 2014Q1

REPORT INFORMATION
  Report Type: Spontaneous
  Country: US (occurrence: None)
  Receive Date: 20140122
  Receipt Date: 20140122
  Transmission Date: 20141002
  Serious: Yes (Other)
  Sender: FDA-Public Use
  Company Number: 2013STPI000464

PATIENT
  Age: 50 Year
  Sex: Male
  Weight: 93.5 kg

DRUGS (2)
  1. ABELCET [Suspect]
     Indication: FUNGAL INFECTION
     Route: 042
     Dates: start: 20131104, end: 20131104
  2. VANCOMYCIN HCL [Suspect]
     Indication: INFECTION
     Route: 042
     Dates: start: 20131031, end: 20131105

REACTIONS (1)
  - Renal failure [None]
